FAERS Safety Report 14589190 (Version 1)
Quarter: 2018Q1

REPORT INFORMATION
  Report Type: Spontaneous
  Country: US (occurrence: US)
  Receive Date: 20180301
  Receipt Date: 20180301
  Transmission Date: 20180509
  Serious: No
  Sender: FDA-Public Use
  Company Number: US-TEVA-2018-US-856041

PATIENT
  Sex: Female

DRUGS (2)
  1. CROMOGLICIC ACID [Suspect]
     Active Substance: CROMOLYN
     Indication: MAST CELL ACTIVATION SYNDROME
     Dosage: 80 MILLIGRAM DAILY;
     Route: 065
     Dates: start: 2016
  2. CROMOGLICIC ACID [Suspect]
     Active Substance: CROMOLYN
     Dosage: 20 MILLIGRAM DAILY;
     Route: 065
     Dates: start: 201710

REACTIONS (7)
  - Dizziness [Unknown]
  - Irritable bowel syndrome [Unknown]
  - Secretion discharge [Unknown]
  - Feeling abnormal [Unknown]
  - Gastrooesophageal reflux disease [Unknown]
  - Malaise [Unknown]
  - Abdominal discomfort [Unknown]

NARRATIVE: CASE EVENT DATE: 201710
